FAERS Safety Report 12245414 (Version 1)
Quarter: 2016Q2

REPORT INFORMATION
  Report Type: Spontaneous
  Country: US (occurrence: None)
  Receive Date: 20160406
  Receipt Date: 20160406
  Transmission Date: 20160815
  Serious: No
  Sender: FDA-Public Use
  Company Number: None

PATIENT
  Age: 61 Year
  Sex: Male
  Weight: 99.79 kg

DRUGS (4)
  1. ENTYVIO [Suspect]
     Active Substance: VEDOLIZUMAB
     Indication: COLITIS ULCERATIVE
     Dosage: 3 INJECTION(S) EVERY 8 WEEKS INTO A VEIN
     Route: 042
     Dates: start: 20160219
  2. FENOFIBRATE. [Concomitant]
     Active Substance: FENOFIBRATE
  3. BYSTOLLIC [Concomitant]
  4. GENERAL MENS VITAMINS [Concomitant]

REACTIONS (5)
  - Fatigue [None]
  - Mental impairment [None]
  - Asthenia [None]
  - Decreased appetite [None]
  - Arthralgia [None]

NARRATIVE: CASE EVENT DATE: 20160226
